FAERS Safety Report 16819543 (Version 1)
Quarter: 2019Q3

REPORT INFORMATION
  Report Type: Spontaneous
  Country: US (occurrence: US)
  Receive Date: 20190917
  Receipt Date: 20190917
  Transmission Date: 20191005
  Serious: No
  Sender: FDA-Public Use
  Company Number: US-JNJFOC-20190820759

PATIENT
  Sex: Male

DRUGS (1)
  1. SPRAVATO [Suspect]
     Active Substance: ESKETAMINE
     Indication: PRODUCT USED FOR UNKNOWN INDICATION
     Dates: start: 20190814

REACTIONS (5)
  - Euphoric mood [Unknown]
  - Stupor [Unknown]
  - Feeling abnormal [Unknown]
  - Restlessness [Unknown]
  - Anxiety [Unknown]

NARRATIVE: CASE EVENT DATE: 20190814
